FAERS Safety Report 8264975-5 (Version None)
Quarter: 2012Q2

REPORT INFORMATION
  Report Type: 
  Country: None (occurrence: None)
  Receive Date: 20120406
  Receipt Date: 20120328
  Transmission Date: 20120825
  Serious: Yes (Hospitalization, Other)
  Sender: FDA-Public Use
  Company Number: CH-TEVA-331001ISR

PATIENT
  Age: 13 Year
  Sex: Male
  Weight: 53 kg

DRUGS (8)
  1. DALACIN CLINDAMYCIN [Concomitant]
     Indication: OSTEOMYELITIS
     Dosage: 1800 MILLIGRAM;
     Route: 041
     Dates: start: 20120314
  2. CO-DAFALGAN [Concomitant]
     Indication: PAIN
     Dosage: 2000 MILLIGRAM;
     Route: 048
     Dates: start: 20120312
  3. ISOTRETINOIN MEPHA [Suspect]
     Indication: ACNE
     Dosage: 20 MILLIGRAM;
     Route: 048
     Dates: start: 20120214, end: 20120308
  4. IBRUPROFEN [Suspect]
     Indication: PAIN
     Dosage: 1200 MILLIGRAM;
     Route: 048
     Dates: start: 20120310, end: 20120312
  5. TIZANIDINE HCL [Suspect]
     Indication: PAIN
     Dosage: 6 MILLIGRAM;
     Route: 048
     Dates: start: 20120310, end: 20120312
  6. VOLTAREN [Suspect]
     Indication: PAIN
     Dosage: 150 MILLIGRAM;
     Route: 048
     Dates: start: 20120312
  7. ACETAMINOPHEN [Concomitant]
     Indication: PAIN
     Dosage: 4 GRAM;
     Route: 048
     Dates: start: 20120310, end: 20120312
  8. CIPROFLOXACIN HYDROCHLORIDE [Suspect]
     Indication: ACNE
     Route: 048
     Dates: start: 20120305, end: 20120308

REACTIONS (3)
  - PSYCHOTIC DISORDER [None]
  - OSTEOMYELITIS [None]
  - ABNORMAL BEHAVIOUR [None]
